FAERS Safety Report 18335090 (Version 4)
Quarter: 2024Q1

REPORT INFORMATION
  Report Type: Spontaneous
  Country: AT (occurrence: AT)
  Receive Date: 20201001
  Receipt Date: 20240326
  Transmission Date: 20240410
  Serious: Yes (Hospitalization)
  Sender: FDA-Public Use
  Company Number: AT-ROCHE-2679585

PATIENT
  Age: 53 Year
  Sex: Female
  Weight: 72 kg

DRUGS (21)
  1. ARANESP [Suspect]
     Active Substance: DARBEPOETIN ALFA
     Indication: Product used for unknown indication
     Dosage: UNK (ONGOING = CHECKED)
     Route: 065
     Dates: start: 20170711
  2. NEULASTA [Suspect]
     Active Substance: PEGFILGRASTIM
     Indication: Product used for unknown indication
     Dosage: UNK (ONGOING = NOT CHECKED)
     Route: 065
     Dates: start: 20170711, end: 20200212
  3. NEULASTA [Suspect]
     Active Substance: PEGFILGRASTIM
     Dosage: ONGOING = CHECKED
     Route: 065
     Dates: start: 20170711
  4. FILGRASTIM [Suspect]
     Active Substance: FILGRASTIM
     Indication: Febrile neutropenia
     Dosage: UNK (ONGOING = NOT CHECKED)
     Route: 065
     Dates: start: 20200218, end: 20200224
  5. HERCEPTIN [Suspect]
     Active Substance: TRASTUZUMAB
     Indication: HER2 positive breast cancer
     Dosage: 6 MILLIGRAM/KILOGRAM, Q3WK/SUBSEQUENT DOSE 21/JAN/20
     Route: 042
     Dates: start: 20170912, end: 20171023
  6. HERCEPTIN [Suspect]
     Active Substance: TRASTUZUMAB
     Dosage: 6 MILLIGRAM/KILOGRAM, Q3WK
     Route: 042
     Dates: start: 20200121, end: 20200212
  7. PARAPLATIN [Suspect]
     Active Substance: CARBOPLATIN
     Indication: HER2 positive breast cancer
     Dosage: 528 MILLIGRAM, Q3WK/RECENT DOSE 23/OCT/2017
     Route: 042
     Dates: start: 20170912, end: 20171023
  8. FLUOROPLEX [Suspect]
     Active Substance: FLUOROURACIL
     Indication: HER2 positive breast cancer
     Dosage: 500 MG/M2, Q3WK(SUBSEQUENT DOSE ON 10/JUL/2018 AND 1/AUG/2018)
     Route: 042
     Dates: start: 20180529
  9. FLUOROPLEX [Suspect]
     Active Substance: FLUOROURACIL
     Dosage: 500 MILLIGRAM/SQ. METER, Q3WK
     Route: 042
     Dates: start: 20180710, end: 20180801
  10. KADCYLA [Suspect]
     Active Substance: ADO-TRASTUZUMAB EMTANSINE
     Indication: HER2 positive breast cancer
     Dosage: 3.6 MG/KG, Q3WK/RECENT DOSE 21/JAN/2020
     Route: 042
     Dates: start: 20190618, end: 20200121
  11. PERJETA [Suspect]
     Active Substance: PERTUZUMAB
     Indication: HER2 positive breast cancer
     Dosage: 420 MILLIGRAM, Q3WK (RECENT DOSE12/FEB/2020)
     Route: 042
     Dates: start: 20170912, end: 20171023
  12. PERJETA [Suspect]
     Active Substance: PERTUZUMAB
     Dosage: 420 MILLIGRAM, Q3WK
     Route: 042
     Dates: start: 20171023, end: 20200212
  13. ABRAXANE [Suspect]
     Active Substance: PACLITAXEL
     Indication: HER2 positive breast cancer
     Dosage: 260 MICROGRAM/KILOGRAM, Q3WK
     Route: 042
     Dates: start: 20200212, end: 20200212
  14. CYTOXAN [Suspect]
     Active Substance: CYCLOPHOSPHAMIDE
     Indication: HER2 positive breast cancer
     Dosage: 500 MILLIGRAM/SQ. METER, Q3WK (DATE OF MOST RECENT DOSE PRIOR TO EVENT ONSET: 10/JUL/2018 )
     Route: 042
     Dates: start: 20180529, end: 20180710
  15. ELLENCE [Suspect]
     Active Substance: EPIRUBICIN HYDROCHLORIDE
     Indication: HER2 positive breast cancer
     Dosage: 100 MILLIGRAM/SQ. METER, Q3WK (RECENT DOSE 10/JUL/2018)
     Route: 042
     Dates: start: 20180529, end: 20180710
  16. TAXOTERE [Suspect]
     Active Substance: DOCETAXEL
     Indication: HER2 positive breast cancer
     Dosage: 109 MILLIGRAM, Q3WK (DATE OF MOST RECENT DOSE 23/OCT/2017)
     Route: 042
     Dates: start: 20170912, end: 20171023
  17. DEXAMETHASONE [Concomitant]
     Active Substance: DEXAMETHASONE
     Dosage: UNK (ONGOING = CHECKED)
     Route: 065
     Dates: start: 20170711
  18. ZOFRAN [Concomitant]
     Active Substance: ONDANSETRON HYDROCHLORIDE
     Dosage: UNK (ONGOING = CHECKED)
     Route: 065
     Dates: start: 20170611, end: 20200810
  19. ZOFRAN [Concomitant]
     Active Substance: ONDANSETRON HYDROCHLORIDE
     Dosage: UNK
  20. DOLOPHINE [Concomitant]
     Active Substance: METHADONE HYDROCHLORIDE
     Dosage: UNK (ONGOING = CHECKED)
     Route: 065
     Dates: start: 20200815
  21. EMEND [Concomitant]
     Active Substance: APREPITANT
     Dosage: UNK (ONGOING = CHECKED)
     Route: 065
     Dates: start: 20170711

REACTIONS (1)
  - Febrile neutropenia [Recovered/Resolved]

NARRATIVE: CASE EVENT DATE: 20200218
